FAERS Safety Report 15636778 (Version 3)
Quarter: 2019Q1

REPORT INFORMATION
  Report Type: Spontaneous
  Country: US (occurrence: US)
  Receive Date: 20181120
  Receipt Date: 20190128
  Transmission Date: 20190417
  Serious: Yes (Other)
  Sender: FDA-Public Use
  Company Number: US-GLAXOSMITHKLINE-US2018GSK209801

PATIENT
  Age: 55 Year
  Sex: Female

DRUGS (1)
  1. BENLYSTA [Suspect]
     Active Substance: BELIMUMAB
     Indication: SYSTEMIC LUPUS ERYTHEMATOSUS
     Dosage: UNK
     Route: 042

REACTIONS (6)
  - Retinal toxicity [Unknown]
  - Somnolence [Unknown]
  - Impaired gastric emptying [Unknown]
  - Ill-defined disorder [Unknown]
  - Gastrectomy [Unknown]
  - Systemic lupus erythematosus [Unknown]
